FAERS Safety Report 10167677 (Version 1)
Quarter: 2014Q2

REPORT INFORMATION
  Report Type: Spontaneous
  Country: IT (occurrence: IT)
  Receive Date: 20140512
  Receipt Date: 20140512
  Transmission Date: 20141212
  Serious: Yes (Other)
  Sender: FDA-Public Use
  Company Number: IT-TEVA-478662ISR

PATIENT
  Age: 54 Year
  Sex: Female

DRUGS (3)
  1. RIBAVIRIN [Suspect]
     Indication: CHRONIC HEPATITIS C
     Dosage: 800 MILLIGRAM DAILY;
     Dates: start: 20140125, end: 20140224
  2. PEGASYS - 180 MCG SOLUZIONE INIETTABILE - ROCHE REGISTRATION LIMITED [Suspect]
     Indication: HEPATIC CIRRHOSIS
     Route: 058
     Dates: start: 20140125, end: 20140224
  3. INCIVO -375 MG - COMPRESSA RIVESTITA CON FILM - JANSSEN CILAG [Suspect]
     Indication: CHRONIC HEPATITIS C
     Dosage: 2250 MILLIGRAM DAILY;
     Route: 048
     Dates: start: 20140125, end: 20140224

REACTIONS (1)
  - Jaundice [Recovered/Resolved]
